FAERS Safety Report 8887324 (Version 4)
Quarter: 2013Q2

REPORT INFORMATION
  Report Type: Spontaneous
  Country: JP (occurrence: JP)
  Receive Date: 20121101
  Receipt Date: 20130528
  Transmission Date: 20140414
  Serious: Yes (Death, Hospitalization, Other)
  Sender: FDA-Public Use
  Company Number: JP-PFIZER INC-2012271320

PATIENT
  Age: 78 Year
  Sex: Female
  Weight: 46.8 kg

DRUGS (6)
  1. LYRICA [Suspect]
     Indication: POST HERPETIC NEURALGIA
     Dosage: 150 MG, 1X/DAY
     Route: 048
     Dates: start: 20120723, end: 20120812
  2. LOBU [Suspect]
     Indication: HERPES ZOSTER
     Dosage: 180 MG, 1X/DAY
     Route: 048
     Dates: start: 20120704, end: 20120812
  3. FAMVIR [Suspect]
     Indication: HERPES ZOSTER
     Dosage: 1500 MG, 1X/DAY
     Route: 048
     Dates: start: 20120704, end: 20120708
  4. METHYCOBAL [Concomitant]
     Indication: HERPES ZOSTER
     Dosage: UNK
     Route: 048
  5. FAMOTIDINE [Concomitant]
     Dosage: UNK
  6. GASTROM [Concomitant]
     Dosage: UNK

REACTIONS (8)
  - Hepatitis fulminant [Fatal]
  - Drug-induced liver injury [Unknown]
  - Hepatitis acute [Unknown]
  - Decreased appetite [Unknown]
  - Oedema [Unknown]
  - Encephalopathy [Unknown]
  - Coma [Unknown]
  - Ascites [Unknown]
